FAERS Safety Report 12441026 (Version 1)
Quarter: 2016Q2

REPORT INFORMATION
  Report Type: Spontaneous
  Country: IT (occurrence: IT)
  Receive Date: 20160607
  Receipt Date: 20160607
  Transmission Date: 20160815
  Serious: Yes (Hospitalization)
  Sender: FDA-Public Use
  Company Number: IT-BIOGEN-2015BI113062

PATIENT
  Age: 55 Year
  Sex: Male

DRUGS (1)
  1. TYSABRI [Suspect]
     Active Substance: NATALIZUMAB
     Indication: MULTIPLE SCLEROSIS
     Route: 042
     Dates: start: 20150428, end: 20150428

REACTIONS (2)
  - Hepatitis acute [Recovered/Resolved]
  - Hereditary haemochromatosis [Not Recovered/Not Resolved]

NARRATIVE: CASE EVENT DATE: 20150521
